FAERS Safety Report 5776289-3 (Version None)
Quarter: 2008Q2

REPORT INFORMATION
  Report Type: 
  Country: None (occurrence: None)
  Receive Date: 20080617
  Receipt Date: 20080617
  Transmission Date: 20081010
  Serious: Yes (Life-Threatening)
  Sender: FDA-Public Use
  Company Number: None

PATIENT
  Sex: Male
  Weight: 88.4 kg

DRUGS (6)
  1. NILOTINIB [Suspect]
     Indication: ACUTE LYMPHOCYTIC LEUKAEMIA
     Dosage: 400MG PO BID
     Route: 048
  2. VORICONAZOLE [Concomitant]
  3. NORVASC [Concomitant]
  4. LEVOFLOXACIN [Concomitant]
  5. MORPHINE [Concomitant]
  6. FILGRASTIM [Concomitant]

REACTIONS (3)
  - ABDOMINAL PAIN [None]
  - DIARRHOEA [None]
  - ELECTROCARDIOGRAM QT PROLONGED [None]
